FAERS Safety Report 9615087 (Version 1)
Quarter: 2013Q4

REPORT INFORMATION
  Report Type: Spontaneous
  Country: US (occurrence: US)
  Receive Date: 20131011
  Receipt Date: 20131011
  Transmission Date: 20140711
  Serious: No
  Sender: FDA-Public Use
  Company Number: US-PURDUE-USA-2013-0098153

PATIENT
  Age: 76 Year
  Sex: Female
  Weight: 82 kg

DRUGS (3)
  1. BUTRANS [Suspect]
     Indication: BACK PAIN
     Dosage: UNK
     Route: 062
     Dates: start: 20121114, end: 201212
  2. FENTANYL /00174602/ [Suspect]
     Indication: BACK PAIN
     Dosage: 25 MCG, UNK
     Route: 062
     Dates: start: 201212, end: 20130119
  3. FENTANYL /00174602/ [Suspect]
     Dosage: 25 MCG, UNK
     Route: 062
     Dates: start: 20130120

REACTIONS (3)
  - Hot flush [Not Recovered/Not Resolved]
  - Hyperhidrosis [Not Recovered/Not Resolved]
  - Musculoskeletal chest pain [Not Recovered/Not Resolved]
